FAERS Safety Report 21888303 (Version 2)
Quarter: 2023Q1

REPORT INFORMATION
  Report Type: Report from Study
  Country: US (occurrence: US)
  Receive Date: 20230120
  Receipt Date: 20230123
  Transmission Date: 20230418
  Serious: Yes (Hospitalization, Other)
  Sender: FDA-Public Use
  Company Number: US-ABBVIE-4273191

PATIENT
  Age: 71 Year
  Sex: Female
  Weight: 107 kg

DRUGS (1)
  1. HUMIRA [Suspect]
     Active Substance: ADALIMUMAB
     Indication: Psoriasis
     Dosage: CF
     Route: 058
     Dates: start: 20200919, end: 202210

REACTIONS (4)
  - Patella fracture [Not Recovered/Not Resolved]
  - Illness [Unknown]
  - Weight fluctuation [Unknown]
  - Nephropathy [Not Recovered/Not Resolved]

NARRATIVE: CASE EVENT DATE: 20230101
